FAERS Safety Report 10067481 (Version 3)
Quarter: 2014Q2

REPORT INFORMATION
  Report Type: Spontaneous
  Country: BE (occurrence: None)
  Receive Date: 20140407
  Receipt Date: 20140527
  Transmission Date: 20141212
  Serious: Yes (Hospitalization)
  Sender: FDA-Public Use
  Company Number: 2014BE003142

PATIENT
  Age: 77 Year
  Sex: 0

DRUGS (22)
  1. PONATINIB [Suspect]
     Indication: CHRONIC MYELOID LEUKAEMIA
     Route: 048
     Dates: start: 20110427
  2. TEMESTA (LORAZEPAM) [Concomitant]
  3. DAFALGAN (PARACETAMOL) [Concomitant]
  4. MOVICOL (MACROGOL 3350, POTASSIUM CHLORIDE, SODIUM BICARBONATE, SODIUM CHLORIDE) [Concomitant]
  5. PICOSULFATE (SODIUM PICOSULFATE) [Concomitant]
  6. SWEET ALMOND OIL (SWEET ALMOND OIL) [Concomitant]
  7. MOXONIDINE (MOXONIDINE) [Concomitant]
  8. LOSARTAN (LOSARTAN POTASSIUM) [Concomitant]
  9. NOBITEN (NEBIVOLOL) [Concomitant]
  10. DYTENZIDE (HYDROCHLOROTHIAZIDE, TRIAMTERENE) [Concomitant]
  11. LORMETAZEPAM (LORMETAZEPAM) [Concomitant]
  12. OMEPRAZOLE (OMEPRAZOLE) [Concomitant]
  13. LACTULOSE (LACTULOSE) [Concomitant]
  14. PROMAGNOR (MAGNESIUM, MAGNESIUM CARBONATE, MAGNESIUM CITRATE, MAGNESIUM PHOSPHATE) [Concomitant]
  15. XANAX (ALPRAZOLAM) [Concomitant]
  16. BETARSEC (BETAHISTINE HYDROCHLORIDE) [Concomitant]
  17. ASAFLOW (ACETYLSALICYLIC ACID) [Concomitant]
  18. PRAXILENE (NAFTIDROFURYL OXALATE) [Concomitant]
  19. ALLOPURINOL (ALLOPURINOL) [Concomitant]
  20. ZANIDIP (LERCANIDIPINE HYDROCHLORIDE) (LERCANIDIPINE [Concomitant]
  21. SIPRALEXA (ESCITALOPRAM OXALATE) [Concomitant]
  22. RIVOTRIL (CLONAZEPAM) [Concomitant]

REACTIONS (15)
  - Renal artery stenosis [None]
  - Chills [None]
  - Renal failure acute [None]
  - Urinary tract infection [None]
  - Aortic stenosis [None]
  - Oedema peripheral [None]
  - Blood pressure systolic increased [None]
  - Femoral artery occlusion [None]
  - Bundle branch block right [None]
  - Red blood cell count decreased [None]
  - Haematocrit decreased [None]
  - Platelet count decreased [None]
  - Mean cell volume increased [None]
  - Blood cholesterol increased [None]
  - Blood triglycerides increased [None]
